FAERS Safety Report 4331799-0 (Version None)
Quarter: 2004Q2

REPORT INFORMATION
  Report Type: 
  Country: None (occurrence: None)
  Receive Date: 20040405
  Receipt Date: 20030827
  Transmission Date: 20050107
  Serious: No
  Sender: FDA-Public Use
  Company Number: US-GLAXOSMITHKLINE-A0423746A

PATIENT
  Age: 49 Year
  Sex: Female
  Weight: 88.6 kg

DRUGS (3)
  1. FLOVENT [Suspect]
     Indication: ASTHMA
     Dosage: 2PUFF TWICE PER DAY
     Route: 055
     Dates: start: 20001201
  2. LIPITOR [Concomitant]
     Dosage: 20MG AT NIGHT
     Route: 048
     Dates: start: 19980601
  3. LISINOPRIL [Concomitant]
     Dosage: 10MG IN THE MORNING
     Route: 048
     Dates: start: 20030401, end: 20030701

REACTIONS (5)
  - COUGH [None]
  - DYSPNOEA [None]
  - MUCOUS MEMBRANE DISORDER [None]
  - PEAK EXPIRATORY FLOW RATE DECREASED [None]
  - PHARMACEUTICAL PRODUCT COMPLAINT [None]
